FAERS Safety Report 16007832 (Version 2)
Quarter: 2019Q2

REPORT INFORMATION
  Report Type: Spontaneous
  Country: US (occurrence: US)
  Receive Date: 20190226
  Receipt Date: 20190412
  Transmission Date: 20190711
  Serious: Yes (Other)
  Sender: FDA-Public Use
  Company Number: US-PFIZER INC-2017407376

PATIENT
  Age: 58 Year
  Sex: Female
  Weight: 119 kg

DRUGS (16)
  1. CELEXA [Concomitant]
     Active Substance: CITALOPRAM HYDROBROMIDE
     Dosage: 20 MG, DAILY (QUANTITY: 30 TAB)
     Route: 048
     Dates: start: 20170719
  2. VITAMIN D3 [Concomitant]
     Active Substance: CHOLECALCIFEROL
     Dosage: 2000 IU, DAILY, (EVERY MORNING, QUANTITY: 90 CAP)
     Route: 048
     Dates: start: 20160314
  3. LYRICA [Suspect]
     Active Substance: PREGABALIN
     Indication: FIBROMYALGIA
     Dosage: 150 MG, 3X/DAY
     Route: 048
     Dates: start: 20170814
  4. BREO ELLIPTA [Concomitant]
     Active Substance: FLUTICASONE FUROATE\VILANTEROL TRIFENATATE
     Dosage: UNK, AS NEEDED (INHALE 1 PUFF AS DIRECTED AS NEEDED)
     Route: 055
     Dates: start: 20160329
  5. NORCO [Concomitant]
     Active Substance: ACETAMINOPHEN\HYDROCODONE BITARTRATE
     Indication: PAIN
     Dosage: 1 DF, 2X/DAY [HYDROCODONE: 7.5]/[PARACETAMOL: 325 MG, QUANTITY: 60 TAB]
     Route: 048
     Dates: start: 20170720
  6. FOSAMAX [Concomitant]
     Active Substance: ALENDRONATE SODIUM
     Dosage: 70 MG, WEEKLY (QUANTITY: 4 TAB)
     Route: 048
     Dates: start: 20160909
  7. LOPRESSOR [Concomitant]
     Active Substance: METOPROLOL TARTRATE
     Dosage: 25 MG, 2X/DAY (QUANITY: 60 TAB)
     Route: 048
     Dates: start: 20161121
  8. AMBIEN [Concomitant]
     Active Substance: ZOLPIDEM TARTRATE
     Indication: SLEEP DISORDER
     Dosage: 10 MG, AS NEEDED (AT BEDTIME DAILY AS NEEDED, QUANTITY: 30 TAB)
     Route: 048
     Dates: start: 20170807
  9. NEXIUM [Concomitant]
     Active Substance: ESOMEPRAZOLE MAGNESIUM
     Dosage: 40 MG, DAILY (QUANTITY: 30 CAP)
     Route: 048
     Dates: start: 20170417
  10. VISTARIL [Concomitant]
     Active Substance: HYDROXYZINE PAMOATE
     Indication: PRURITUS
     Dosage: 50 MG, 3X/DAY (TAKE 1 CAP BY MOUTH 3 (THREE) TIMES DAILY AS NEEDED, QUANTITY: 90 CAP)
     Route: 048
     Dates: start: 20161003
  11. PRINIVIL [Concomitant]
     Active Substance: LISINOPRIL
     Dosage: 20 MG, DAILY (QUANTITY: 30 TAB)
     Route: 048
     Dates: start: 20170519
  12. CLARITIN [Concomitant]
     Active Substance: LORATADINE
     Dosage: 10 MG, DAILY (QUANITY: 30 TAB)
     Route: 048
     Dates: start: 20170414
  13. BUSPAR [Concomitant]
     Active Substance: BUSPIRONE HYDROCHLORIDE
     Dosage: 10 MG, 2X/DAY (QUANTITY: 60 TAB)
     Route: 048
     Dates: start: 20161003
  14. ZESTRIL [Concomitant]
     Active Substance: LISINOPRIL
     Dosage: 20 MG, DAILY (QUANTITY: 30 TAB)
     Route: 048
     Dates: start: 20170519
  15. ZOFRAN [Concomitant]
     Active Substance: ONDANSETRON HYDROCHLORIDE
     Indication: NAUSEA
     Dosage: 4 MG, 3X/DAY (TAKE 1 TAB BY MOUTH EVERY 8 (EIGHT) HOURS AS NEEDED, QUANTITY: 10 TAB)
     Route: 048
     Dates: start: 20170620
  16. LYRICA [Suspect]
     Active Substance: PREGABALIN
     Indication: RHEUMATOID ARTHRITIS

REACTIONS (5)
  - Myocardial infarction [Recovered/Resolved]
  - Dementia [Unknown]
  - Gait disturbance [Unknown]
  - Cerebrovascular accident [Recovered/Resolved with Sequelae]
  - Tremor [Unknown]

NARRATIVE: CASE EVENT DATE: 2018
